FAERS Safety Report 22004859 (Version 1)
Quarter: 2023Q1

REPORT INFORMATION
  Report Type: Report from Study
  Country: US (occurrence: US)
  Receive Date: 20230217
  Receipt Date: 20230217
  Transmission Date: 20230417
  Serious: Yes (Other)
  Sender: FDA-Public Use
  Company Number: US-GLAXOSMITHKLINE-US2023AMR023225

PATIENT

DRUGS (4)
  1. NIRAPARIB [Suspect]
     Active Substance: NIRAPARIB
     Indication: Ovarian cancer
     Dosage: 200 MG, QD
     Dates: start: 20220607, end: 20220701
  2. NIRAPARIB [Suspect]
     Active Substance: NIRAPARIB
     Dosage: 100 MG, QD
     Dates: start: 20220807
  3. NIRAPARIB [Suspect]
     Active Substance: NIRAPARIB
     Dosage: UNK, (100MG ON ODD DAYS, 200MG ON EVEN DAYS)
     Dates: start: 20221014
  4. NIRAPARIB [Suspect]
     Active Substance: NIRAPARIB
     Dosage: 200 MG, QD
     Dates: start: 202212

REACTIONS (4)
  - Squamous cell carcinoma [Not Recovered/Not Resolved]
  - Constipation [Recovering/Resolving]
  - Arthralgia [Recovering/Resolving]
  - Inappropriate schedule of product administration [Unknown]
